FAERS Safety Report 5957644-5 (Version None)
Quarter: 2008Q4

REPORT INFORMATION
  Report Type: 
  Country: None (occurrence: None)
  Receive Date: 20081113
  Receipt Date: 20081031
  Transmission Date: 20090506
  Serious: Yes (Hospitalization)
  Sender: FDA-Public Use
  Company Number: FR-JNJFOC-20081100192

PATIENT
  Age: 83 Year
  Sex: Female

DRUGS (6)
  1. DECITABINE (DECITABINE) LYOPHILIZED POWDER [Suspect]
     Indication: ACUTE MYELOID LEUKAEMIA
     Dosage: 36.6 MG, 1 IN 1 DAY, INTRAVENOUS
     Route: 042
     Dates: end: 20081017
  2. DECITABINE (DECITABINE) LYOPHILIZED POWDER [Suspect]
     Indication: ACUTE MYELOID LEUKAEMIA
     Dosage: 36.6 MG, 1 IN 1 DAY, INTRAVENOUS
     Route: 042
     Dates: start: 20080728
  3. VFEND (VORICONAZOLE) CAPSULE [Concomitant]
  4. ARIMIDEX (ANASTROZOLE) CAPSULE [Concomitant]
  5. SOTALEX (SOTALOL HYDROCHLORIDE) CAPSULE [Concomitant]
  6. INIPOMP (PANTOPRAZOLE) CAPSULE [Concomitant]

REACTIONS (2)
  - CHOLECYSTITIS ACUTE [None]
  - HYDROCHOLECYSTIS [None]
